FAERS Safety Report 10075658 (Version 1)
Quarter: 2014Q2

REPORT INFORMATION
  Report Type: Spontaneous
  Country: JP (occurrence: JP)
  Receive Date: 20140414
  Receipt Date: 20140414
  Transmission Date: 20141212
  Serious: Yes (Other)
  Sender: FDA-Public Use
  Company Number: JP-MYLANLABS-2014S1008057

PATIENT
  Age: 64 Year
  Sex: Female

DRUGS (6)
  1. HALOPERIDOL [Suspect]
     Indication: SCHIZOPHRENIA
     Route: 048
  2. HALOPERIDOL [Suspect]
     Indication: MENTAL RETARDATION
     Route: 048
  3. MAGNESIUM OXIDE [Suspect]
     Indication: SCHIZOPHRENIA
     Route: 048
  4. MAGNESIUM OXIDE [Suspect]
     Indication: MENTAL RETARDATION
     Route: 048
  5. TRIHEXYPHENIDYL HYDROCHLORIDE [Suspect]
     Indication: SCHIZOPHRENIA
     Route: 048
  6. TRIHEXYPHENIDYL HYDROCHLORIDE [Suspect]
     Indication: MENTAL RETARDATION
     Route: 048

REACTIONS (2)
  - Gastrointestinal hypomotility [Unknown]
  - Faecalith [Unknown]
